FAERS Safety Report 8249496-8 (Version None)
Quarter: 2012Q2

REPORT INFORMATION
  Report Type: 
  Country: None (occurrence: None)
  Receive Date: 20120402
  Receipt Date: 20120322
  Transmission Date: 20120825
  Serious: Yes (Hospitalization)
  Sender: FDA-Public Use
  Company Number: AU-JNJFOC-20120311706

PATIENT
  Age: 13 Year
  Sex: Male

DRUGS (4)
  1. RISPERDAL [Suspect]
     Dosage: 1.5 MG IN THE MORNING AND 1 MG IN THE AFTERNOON
     Route: 048
  2. ABILIFY [Suspect]
     Indication: PRODUCT USED FOR UNKNOWN INDICATION
     Route: 065
  3. RISPERDAL [Suspect]
     Indication: PRODUCT USED FOR UNKNOWN INDICATION
     Dosage: 1.5 MG IN THE MORNING AND 1 MG IN THE AFTERNOON
     Route: 048
  4. RISPERDAL [Suspect]
     Dosage: 1.5 MG IN THE MORNING AND 0.5 MG IN THE AFTERNOON
     Route: 048

REACTIONS (7)
  - HALLUCINATION [None]
  - WEIGHT INCREASED [None]
  - INSOMNIA [None]
  - NERVOUSNESS [None]
  - MUSCLE TWITCHING [None]
  - AGGRESSION [None]
  - CHILLS [None]
